FAERS Safety Report 19983168 (Version 1)
Quarter: 2021Q4

REPORT INFORMATION
  Report Type: Spontaneous
  Country: US (occurrence: US)
  Receive Date: 20211022
  Receipt Date: 20211022
  Transmission Date: 20220303
  Serious: Yes (Hospitalization, Other)
  Sender: FDA-Public Use
  Company Number: US-IPCA LABORATORIES LIMITED-IPC-2021-US-001798

PATIENT

DRUGS (1)
  1. WARFARIN [Suspect]
     Active Substance: WARFARIN
     Indication: Atrial flutter
     Dosage: UNK
     Route: 065

REACTIONS (9)
  - Pericardial haemorrhage [Unknown]
  - Cardiac arrest [Unknown]
  - Nephropathy [Unknown]
  - Hypotension [Unknown]
  - Anticoagulation drug level above therapeutic [Unknown]
  - Renal failure [Unknown]
  - Dyspnoea [Unknown]
  - Haemodynamic instability [Recovering/Resolving]
  - Pericardial effusion [Recovering/Resolving]
